FAERS Safety Report 18844869 (Version 1)
Quarter: 2021Q1

REPORT INFORMATION
  Report Type: Report from Study
  Country: US (occurrence: US)
  Receive Date: 20210203
  Receipt Date: 20210203
  Transmission Date: 20210419
  Serious: No
  Sender: FDA-Public Use
  Company Number: US-EXELIXIS-CABO-20033380

PATIENT
  Sex: Male

DRUGS (1)
  1. CABOMETYX [Suspect]
     Active Substance: CABOZANTINIB S-MALATE
     Indication: RENAL CELL CARCINOMA
     Dosage: 60 MG, QD
     Dates: start: 20200907

REACTIONS (9)
  - Taste disorder [Not Recovered/Not Resolved]
  - Insomnia [Unknown]
  - Sensory disturbance [Unknown]
  - Urine odour abnormal [Unknown]
  - Oral mucosal blistering [Unknown]
  - Diarrhoea [Recovered/Resolved]
  - Implant site pruritus [Not Recovered/Not Resolved]
  - Rhinorrhoea [Unknown]
  - Decreased appetite [Recovered/Resolved]
